FAERS Safety Report 4491031-4 (Version None)
Quarter: 2004Q4

REPORT INFORMATION
  Report Type: 
  Country: None (occurrence: None)
  Receive Date: 20041102
  Receipt Date: 20041021
  Transmission Date: 20050328
  Serious: Yes (Life-Threatening, Hospitalization)
  Sender: FDA-Public Use
  Company Number: US-MERCK-0410USA03359

PATIENT
  Age: 27 Year
  Sex: Male

DRUGS (6)
  1. NOROXIN [Suspect]
     Route: 048
     Dates: start: 20040701, end: 20041014
  2. NEURONTIN [Concomitant]
     Route: 065
  3. CARBAMAZEPINE [Concomitant]
     Route: 065
  4. SINGULAIR [Concomitant]
     Indication: ASTHMA
     Route: 065
  5. CLARITIN [Concomitant]
     Route: 065
  6. CLONAZEPAM [Concomitant]
     Route: 065

REACTIONS (3)
  - CAPILLARY DISORDER [None]
  - PNEUMONIA [None]
  - PULMONARY ALVEOLAR HAEMORRHAGE [None]
